FAERS Safety Report 25836447 (Version 1)
Quarter: 2025Q3

REPORT INFORMATION
  Report Type: Spontaneous
  Country: US (occurrence: US)
  Receive Date: 20250923
  Receipt Date: 20250923
  Transmission Date: 20251021
  Serious: Yes (Other)
  Sender: MYLAN
  Company Number: US-MYLANLABS-2025M1080649

PATIENT
  Age: 77 Year
  Sex: Male

DRUGS (5)
  1. DIFLUPREDNATE OPHTHALMIC EMULSION [Suspect]
     Active Substance: DIFLUPREDNATE
     Indication: Macular oedema
  2. DIFLUPREDNATE OPHTHALMIC EMULSION [Suspect]
     Active Substance: DIFLUPREDNATE
  3. KETOROLAC [Suspect]
     Active Substance: KETOROLAC TROMETHAMINE
     Indication: Cystoid macular oedema
  4. PREDNISOLONE ACETATE [Suspect]
     Active Substance: PREDNISOLONE ACETATE
     Indication: Cystoid macular oedema
  5. PREDNISOLONE ACETATE [Suspect]
     Active Substance: PREDNISOLONE ACETATE
     Indication: Anterior chamber inflammation

REACTIONS (1)
  - Drug ineffective [Unknown]
